FAERS Safety Report 12688935 (Version 2)
Quarter: 2016Q4

REPORT INFORMATION
  Report Type: Spontaneous
  Country: US (occurrence: US)
  Receive Date: 20160825
  Receipt Date: 20161212
  Transmission Date: 20170207
  Serious: No
  Sender: FDA-Public Use
  Company Number: US-FRI-1000081996

PATIENT
  Age: 44 Year
  Sex: Female

DRUGS (19)
  1. LAMOTRIGINE. [Concomitant]
     Active Substance: LAMOTRIGINE
     Indication: AFFECTIVE DISORDER
     Dosage: 100 MG, QD
     Route: 048
     Dates: start: 201403
  2. NYSTATIN. [Concomitant]
     Active Substance: NYSTATIN
     Indication: LYME DISEASE
     Dosage: UNK
     Route: 048
  3. DIFLUCAN [Concomitant]
     Active Substance: FLUCONAZOLE
     Indication: LYME DISEASE
     Dosage: UNK
     Route: 048
  4. TINDAMAX [Concomitant]
     Active Substance: TINIDAZOLE
     Indication: LYME DISEASE
     Dosage: UNK
     Route: 048
  5. BIAXIN [Concomitant]
     Active Substance: CLARITHROMYCIN
     Indication: BABESIOSIS
  6. LEXAPRO [Suspect]
     Active Substance: ESCITALOPRAM OXALATE
     Indication: POST-TRAUMATIC STRESS DISORDER
     Dosage: 20 MG, QD
     Route: 048
     Dates: start: 2014, end: 20151230
  7. MULTIVITAMINS [Concomitant]
     Active Substance: VITAMINS
     Dosage: UNK
     Route: 048
  8. NYSTATIN. [Concomitant]
     Active Substance: NYSTATIN
     Indication: BABESIOSIS
  9. MEPRON [Concomitant]
     Active Substance: ATOVAQUONE
     Indication: LYME DISEASE
     Dosage: UNK
     Route: 048
  10. DIFLUCAN [Concomitant]
     Active Substance: FLUCONAZOLE
     Indication: BABESIOSIS
  11. ESCITALOPRAM OXALATE UNK [Suspect]
     Active Substance: ESCITALOPRAM OXALATE
     Indication: POST-TRAUMATIC STRESS DISORDER
     Dosage: 20 MG, QD
     Route: 048
     Dates: start: 20151231
  12. ESCITALOPRAM OXALATE UNK [Suspect]
     Active Substance: ESCITALOPRAM OXALATE
     Indication: MAJOR DEPRESSION
  13. MEPRON [Concomitant]
     Active Substance: ATOVAQUONE
     Indication: BABESIOSIS
  14. TINDAMAX [Concomitant]
     Active Substance: TINIDAZOLE
     Indication: BABESIOSIS
  15. BIAXIN [Concomitant]
     Active Substance: CLARITHROMYCIN
     Indication: LYME DISEASE
     Dosage: UNK
     Route: 048
  16. CETIRIZINE [Concomitant]
     Active Substance: CETIRIZINE HYDROCHLORIDE
     Indication: SEASONAL ALLERGY
     Dosage: 10 MG, QD
     Route: 048
  17. DEPLIN [Concomitant]
     Active Substance: LEVOMEFOLATE CALCIUM
     Indication: HAEMOLYTIC ANAEMIA
     Dosage: 7 MG, QD
     Route: 048
  18. ADVIL [Concomitant]
     Active Substance: IBUPROFEN
     Dosage: UNK
     Route: 048
  19. METHYLCOBALAMIN. [Concomitant]
     Active Substance: METHYLCOBALAMIN
     Indication: HAEMOLYTIC ANAEMIA
     Dosage: UNK
     Route: 060

REACTIONS (16)
  - Mental disorder [Not Recovered/Not Resolved]
  - Depression [Not Recovered/Not Resolved]
  - Psychotic behaviour [Recovered/Resolved]
  - Anxiety [Not Recovered/Not Resolved]
  - Irritability [Not Recovered/Not Resolved]
  - Dizziness [Recovered/Resolved]
  - Insomnia [Recovered/Resolved]
  - Withdrawal syndrome [Recovered/Resolved]
  - Tremor [Recovered/Resolved]
  - Altered state of consciousness [Not Recovered/Not Resolved]
  - Drug ineffective [Not Recovered/Not Resolved]
  - Paraesthesia [Recovered/Resolved]
  - Energy increased [Recovered/Resolved]
  - Dyssomnia [Not Recovered/Not Resolved]
  - Photophobia [Not Recovered/Not Resolved]
  - Post-traumatic stress disorder [Not Recovered/Not Resolved]

NARRATIVE: CASE EVENT DATE: 20151205
